FAERS Safety Report 8444585-7 (Version None)
Quarter: 2012Q2

REPORT INFORMATION
  Report Type: 
  Country: None (occurrence: None)
  Receive Date: 20120618
  Receipt Date: 20120120
  Transmission Date: 20120825
  Serious: Yes (Other)
  Sender: FDA-Public Use
  Company Number: SE-CELGENEUS-150-50794-12012104

PATIENT
  Sex: Male

DRUGS (15)
  1. FINASTERID [Concomitant]
     Route: 065
  2. NAVOBAN [Concomitant]
  3. PRIMPERAN TAB [Concomitant]
  4. MAXIDEX [Concomitant]
     Route: 047
  5. PREDNISOLONE [Concomitant]
     Route: 065
  6. OMEPRAZOLE [Concomitant]
     Route: 065
  7. VIDAZA [Suspect]
     Route: 058
     Dates: start: 20100927, end: 20110305
  8. SIMVASTATIN [Concomitant]
     Route: 065
  9. LAXOBERAL [Concomitant]
     Route: 048
  10. TENORMIN [Concomitant]
  11. ALLOPURINOL [Concomitant]
     Route: 065
  12. LEVOTHYROXINE SODIUM [Concomitant]
  13. ATACAND [Concomitant]
  14. LACTULOSE MEDA [Concomitant]
     Route: 048
  15. ASPIRIN [Concomitant]

REACTIONS (2)
  - PANNICULITIS [None]
  - FAT NECROSIS [None]
